FAERS Safety Report 4627218-7 (Version None)
Quarter: 2005Q1

REPORT INFORMATION
  Report Type: 
  Country: None (occurrence: None)
  Receive Date: 20050330
  Receipt Date: 20050316
  Transmission Date: 20050727
  Serious: Yes (Hospitalization)
  Sender: FDA-Public Use
  Company Number: 2005BI003736

PATIENT
  Age: 68 Year
  Sex: Male

DRUGS (2)
  1. AMEVIVE [Suspect]
     Indication: PSORIASIS
     Dosage: SEE IMAGE
     Route: 030
     Dates: start: 20040929, end: 20041101
  2. AMEVIVE [Suspect]
     Indication: PSORIASIS
     Dosage: SEE IMAGE
     Route: 030
     Dates: start: 20050120, end: 20050207

REACTIONS (4)
  - CARDIAC PACEMAKER INSERTION [None]
  - CD4 LYMPHOCYTES DECREASED [None]
  - MALAISE [None]
  - PNEUMONIA [None]
